FAERS Safety Report 10594639 (Version 2)
Quarter: 2015Q1

REPORT INFORMATION
  Report Type: Spontaneous
  Country: IT (occurrence: IT)
  Receive Date: 20141120
  Receipt Date: 20150329
  Transmission Date: 20150720
  Serious: Yes (Hospitalization)
  Sender: FDA-Public Use
  Company Number: IT-ROCHE-1493325

PATIENT
  Age: 88 Year
  Sex: Male

DRUGS (8)
  1. QUETIAPINA [Concomitant]
     Active Substance: QUETIAPINE
     Route: 065
  2. TAVOR [Concomitant]
     Active Substance: LORAZEPAM
     Dosage: 1 MG TABLETS
     Route: 048
  3. TACHIPIRINA [Concomitant]
     Active Substance: ACETAMINOPHEN
     Dosage: 500 MG TABLETS 10 TABLETS
     Route: 048
  4. LEVOXACIN [Suspect]
     Active Substance: LEVOFLOXACIN
     Indication: PRODUCT USED FOR UNKNOWN INDICATION
     Dosage: 5 MG/ML SOLUTION FOR INTRAVENOUS INFUSION
     Route: 042
     Dates: start: 20141103, end: 20141114
  5. TALOFEN [Concomitant]
     Active Substance: PROMAZINE HYDROCHLORIDE
     Dosage: 4 MG/100 ML ORAL DROPS, SOLUTION
     Route: 048
  6. ROCEFIN [Suspect]
     Active Substance: CEFTRIAXONE SODIUM
     Indication: PRODUCT USED FOR UNKNOWN INDICATION
     Dosage: 1 G/10 ML POWDER AND SOLVENT FOR SOLUTION FOR INJECTION
     Route: 042
     Dates: start: 20141103, end: 20141114
  7. COSOPT [Concomitant]
     Active Substance: DORZOLAMIDE HYDROCHLORIDE\TIMOLOL MALEATE
     Dosage: EYE DROP SOLUTION 2%+0.5%
     Route: 065
  8. LUMIGAN [Concomitant]
     Active Substance: BIMATOPROST
     Dosage: EYE DROP, SOLUTION 1 VIAL, 3ML
     Route: 065

REACTIONS (2)
  - Bronchopneumonia [Recovering/Resolving]
  - Drug ineffective [Unknown]

NARRATIVE: CASE EVENT DATE: 20141117
